FAERS Safety Report 9490499 (Version 1)
Quarter: 2013Q3

REPORT INFORMATION
  Report Type: Spontaneous
  Country: CA (occurrence: None)
  Receive Date: 20130823
  Receipt Date: 20130823
  Transmission Date: 20140515
  Serious: Yes (Hospitalization)
  Sender: FDA-Public Use
  Company Number: NPIL/SEV/H/2013/68

PATIENT
  Age: 47 Year
  Sex: 0

DRUGS (7)
  1. SEVOFLURANE [Suspect]
     Indication: ANAESTHESIA
     Dosage: 1-1.5, INHALATION
     Route: 055
  2. REMIFENTANIL [Concomitant]
  3. PROPOFOL [Concomitant]
  4. ROCURONIUM [Concomitant]
  5. DEXAMETHASONE [Concomitant]
  6. MANNITOL [Concomitant]
  7. PHENYTOIN [Concomitant]

REACTIONS (3)
  - Bradycardia [None]
  - Cardiac arrest [None]
  - Blood pressure increased [None]
